FAERS Safety Report 4285371-1 (Version None)
Quarter: 2004Q1

REPORT INFORMATION
  Report Type: 
  Country: None (occurrence: None)
  Receive Date: 20040202
  Receipt Date: 20040127
  Transmission Date: 20041129
  Serious: Yes (Hospitalization)
  Sender: FDA-Public Use
  Company Number: 200410006BYL

PATIENT
  Age: 53 Year
  Sex: Male
  Weight: 71.2 kg

DRUGS (8)
  1. ASPIRIN [Suspect]
     Indication: CEREBRAL INFARCTION
     Dosage: 100 MG, QD, ORAL
     Route: 048
     Dates: start: 20031224, end: 20031226
  2. DIOVAN [Suspect]
     Indication: RENAL FAILURE CHRONIC
     Dosage: 40 MG, QD, ORAL
     Route: 048
     Dates: start: 20031224, end: 20031226
  3. FAMOTIDINE [Suspect]
     Indication: GASTRIC ULCER
     Dosage: 10 MG, QD, ORAL
     Route: 048
     Dates: start: 20031224, end: 20031225
  4. MUCOSTA [Concomitant]
  5. ACECOL [Concomitant]
  6. DIART [Concomitant]
  7. KREMEZIN [Concomitant]
  8. KALIMATE [Concomitant]

REACTIONS (5)
  - BLOOD CREATININE INCREASED [None]
  - GASTRITIS [None]
  - HYPERKALAEMIA [None]
  - OEDEMA PERIPHERAL [None]
  - RENAL IMPAIRMENT [None]
